FAERS Safety Report 7290929-1 (Version None)
Quarter: 2011Q1

REPORT INFORMATION
  Report Type: 
  Country: None (occurrence: None)
  Receive Date: 20110202
  Receipt Date: 20110118
  Transmission Date: 20110831
  Serious: Yes (Hospitalization, Other)
  Sender: FDA-Public Use
  Company Number: AUR-APL-2011-00267

PATIENT
  Age: 47 Year
  Sex: Male

DRUGS (1)
  1. METFORMIN [Suspect]
     Indication: DIABETES MELLITUS

REACTIONS (19)
  - DEPRESSION [None]
  - HYPOGLYCAEMIA [None]
  - HYPERVENTILATION [None]
  - METABOLIC ACIDOSIS [None]
  - SINUS TACHYCARDIA [None]
  - BUNDLE BRANCH BLOCK RIGHT [None]
  - BLOOD PRESSURE DECREASED [None]
  - CARDIAC ARREST [None]
  - DEHYDRATION [None]
  - RENAL FAILURE ACUTE [None]
  - AGITATION [None]
  - SUICIDE ATTEMPT [None]
  - VOMITING [None]
  - LACTIC ACIDOSIS [None]
  - DIARRHOEA [None]
  - SHOCK [None]
  - DIALYSIS [None]
  - TOXICITY TO VARIOUS AGENTS [None]
  - URINE OUTPUT DECREASED [None]
